FAERS Safety Report 25317274 (Version 2)
Quarter: 2025Q2

REPORT INFORMATION
  Report Type: Report from Study
  Country: US (occurrence: US)
  Receive Date: 20250515
  Receipt Date: 20250528
  Transmission Date: 20250717
  Serious: Yes (Other)
  Sender: TAKEDA
  Company Number: US-TAKEDA-2025TUS044961

PATIENT

DRUGS (4)
  1. TEDUGLUTIDE [Suspect]
     Active Substance: TEDUGLUTIDE
     Indication: Short-bowel syndrome
     Dosage: 0.10 MILLILITER, QD
     Dates: start: 201910
  2. TEDUGLUTIDE [Suspect]
     Active Substance: TEDUGLUTIDE
  3. TEDUGLUTIDE [Suspect]
     Active Substance: TEDUGLUTIDE
  4. TEDUGLUTIDE [Suspect]
     Active Substance: TEDUGLUTIDE

REACTIONS (7)
  - Nephrolithiasis [Not Recovered/Not Resolved]
  - Venous injury [Recovered/Resolved]
  - Viral infection [Recovered/Resolved]
  - Injection site mass [Not Recovered/Not Resolved]
  - Contusion [Recovered/Resolved]
  - Weight decreased [Unknown]
  - Injection site haemorrhage [Recovered/Resolved]
